FAERS Safety Report 23628631 (Version 1)
Quarter: 2024Q1

REPORT INFORMATION
  Report Type: Spontaneous
  Country: FR (occurrence: FR)
  Receive Date: 20240313
  Receipt Date: 20240313
  Transmission Date: 20240409
  Serious: Yes (Other)
  Sender: FDA-Public Use
  Company Number: FR-WOODWARD-2024-FR-000047

PATIENT
  Age: 56 Year
  Sex: Female

DRUGS (9)
  1. RABEPRAZOLE SODIUM [Suspect]
     Active Substance: RABEPRAZOLE SODIUM
     Indication: Gastrooesophageal reflux disease
     Dosage: 1.0 DOSAGE FORM (1 DOSAGE FORM, 1 IN 1 DAY)
     Route: 048
     Dates: start: 20170615
  2. EBASTINE [Suspect]
     Active Substance: EBASTINE
     Dosage: 1.0 DOSAGE FORM (1 DOSAGE FORM, 1 IN 1 DAY)
     Route: 048
  3. TAHOR [Suspect]
     Active Substance: ATORVASTATIN CALCIUM
     Dosage: 1.0 DOSAGE FORM (1 DOSAGE FORM, 1 IN 1 DAY)
     Route: 048
  4. XOLAIR [Suspect]
     Active Substance: OMALIZUMAB
     Dosage: 5.357 MILLIGRAM(S) (75 MILLIGRAM(S), 1 IN 2 WEEK)
     Route: 058
     Dates: start: 20181008, end: 20240207
  5. IRBESARTAN [Concomitant]
     Active Substance: IRBESARTAN
     Dosage: UNKNOWN
  6. INNOVAIR [Concomitant]
     Active Substance: BECLOMETHASONE DIPROPIONATE\FORMOTEROL
     Dosage: UNKNOWN
  7. ACETAMINOPHEN\OPIUM [Concomitant]
     Active Substance: ACETAMINOPHEN\OPIUM
     Dosage: UNKNOWN
  8. LEVOTHYROXINE [Concomitant]
     Active Substance: LEVOTHYROXINE\LEVOTHYROXINE SODIUM
     Dosage: UNKNOWN
  9. NORDAZEPAM [Concomitant]
     Active Substance: NORDAZEPAM
     Dosage: UNKNOWN

REACTIONS (1)
  - Overweight [Not Recovered/Not Resolved]

NARRATIVE: CASE EVENT DATE: 20210210
